FAERS Safety Report 22177439 (Version 1)
Quarter: 2023Q2

REPORT INFORMATION
  Report Type: Spontaneous
  Country: US (occurrence: US)
  Receive Date: 20230405
  Receipt Date: 20230405
  Transmission Date: 20230722
  Serious: No
  Sender: FDA-Public Use
  Company Number: US-CHEMOCENTRYX, INC.-2023USCCXI0761

PATIENT

DRUGS (2)
  1. TAVNEOS [Suspect]
     Active Substance: AVACOPAN
     Indication: Microscopic polyangiitis
     Dosage: 30 MG, BID
     Route: 048
     Dates: start: 20220701, end: 202212
  2. TAVNEOS [Suspect]
     Active Substance: AVACOPAN
     Indication: Arthritis

REACTIONS (2)
  - Dyspnoea [Unknown]
  - Urinary tract infection [Unknown]

NARRATIVE: CASE EVENT DATE: 20220101
